FAERS Safety Report 5733136-3 (Version None)
Quarter: 2008Q2

REPORT INFORMATION
  Report Type: 
  Country: None (occurrence: None)
  Receive Date: 20080507
  Receipt Date: 20080426
  Transmission Date: 20081010
  Serious: Yes (Life-Threatening, Hospitalization, Disabling, Other)
  Sender: FDA-Public Use
  Company Number: OSCN-UK-0702S-0090

PATIENT
  Age: 61 Year
  Sex: Female
  Weight: 85 kg

DRUGS (2)
  1. OMNISCAN [Suspect]
     Indication: DRUG USE FOR UNKNOWN INDICATION
     Dosage: 30 ML, SINGLE DOSE, I.V.; 30 ML, SINGLE DOSE, I.V.; 30 ML, SINGLE DOSE, I.V.
     Route: 042
     Dates: start: 20000614, end: 20000614
  2. OMNISCAN [Suspect]
     Indication: DRUG USE FOR UNKNOWN INDICATION
     Dosage: 30 ML, SINGLE DOSE, I.V.; 30 ML, SINGLE DOSE, I.V.; 30 ML, SINGLE DOSE, I.V.
     Route: 042
     Dates: start: 20001011, end: 20001011

REACTIONS (1)
  - NEPHROGENIC SYSTEMIC FIBROSIS [None]
